FAERS Safety Report 5376076-4 (Version None)
Quarter: 2007Q3

REPORT INFORMATION
  Report Type: 
  Country: None (occurrence: None)
  Receive Date: 20070702
  Receipt Date: 20070621
  Transmission Date: 20080115
  Serious: Yes (Life-Threatening)
  Sender: FDA-Public Use
  Company Number: DE-SOLVAY-00307000745

PATIENT
  Age: 27887 Day
  Sex: Female
  Weight: 64 kg

DRUGS (8)
  1. NORVASC [Concomitant]
     Indication: BLOOD PRESSURE INCREASED
     Dosage: DAILY DOSE: 5 MILLIGRAM(S)
     Route: 048
     Dates: start: 19941006
  2. CREON [Suspect]
     Indication: PANCREATIC INSUFFICIENCY
     Dosage: DAILY DOSE:  UNKNOWN
     Route: 065
     Dates: start: 19900101, end: 20000101
  3. CREON [Suspect]
     Dosage: DAILY DOSE:  UNKNOWN
     Route: 065
     Dates: start: 20070101, end: 20070201
  4. CREON [Suspect]
     Dosage: DAILY DOSE: 3 DOSAGE FORM
     Route: 048
     Dates: start: 20070216, end: 20070307
  5. CREON [Suspect]
     Dosage: DAILY DOSE:  UNKNOWN
     Route: 065
     Dates: start: 20070308
  6. THYRONAJOD 50 MG [Concomitant]
     Indication: THYROID DISORDER
     Dosage: DAILY DOSE: 50 MILLIGRAM(S)
     Route: 048
     Dates: start: 20020502
  7. CAPTOPRIL [Concomitant]
     Indication: BLOOD PRESSURE INCREASED
     Dosage: DAILY DOSE: 25 MILLIGRAM(S)
     Route: 048
     Dates: start: 20060917
  8. SORTIS 80 MG [Concomitant]
     Indication: PROPHYLAXIS
     Dosage: DAILY DOSE:  UNKNOWN; FREQUENCY: 1/2 TAB EVERY SECOND DAY
     Route: 048
     Dates: start: 20040506

REACTIONS (6)
  - ABDOMINAL DISTENSION [None]
  - ANOREXIA [None]
  - DIARRHOEA [None]
  - NAUSEA [None]
  - NIGHT SWEATS [None]
  - PRURITUS [None]
